FAERS Safety Report 8241453-0 (Version None)
Quarter: 2012Q1

REPORT INFORMATION
  Report Type: 
  Country: None (occurrence: None)
  Receive Date: 20120328
  Receipt Date: 20120316
  Transmission Date: 20120608
  Serious: Yes (Other)
  Sender: FDA-Public Use
  Company Number: FR-ELI_LILLY_AND_COMPANY-FR201203005260

PATIENT
  Age: 37 Year
  Sex: Male

DRUGS (3)
  1. LEPTICUR [Concomitant]
  2. TERCIAN [Concomitant]
     Dosage: 200 MG, QD
  3. ZYPREXA [Suspect]
     Indication: PSYCHOTIC DISORDER
     Dosage: 20 MG, QD
     Route: 048

REACTIONS (1)
  - COLITIS ULCERATIVE [None]
